FAERS Safety Report 4486640-2 (Version None)
Quarter: 2004Q4

REPORT INFORMATION
  Report Type: 
  Country: None (occurrence: None)
  Receive Date: 20041021
  Receipt Date: 20040903
  Transmission Date: 20050328
  Serious: Yes (Death)
  Sender: FDA-Public Use
  Company Number: 2004232580AR

PATIENT
  Age: 71 Year
  Sex: Female

DRUGS (1)
  1. CABERGOLINE [Suspect]
     Indication: PARKINSON'S DISEASE
     Dosage: 4 MG/DAY, ORAL
     Route: 048
     Dates: start: 20040303, end: 20040428

REACTIONS (1)
  - CARDIO-RESPIRATORY ARREST [None]
